FAERS Safety Report 22255794 (Version 1)
Quarter: 2023Q2

REPORT INFORMATION
  Report Type: Spontaneous
  Country: None (occurrence: GB)
  Receive Date: 20230426
  Receipt Date: 20230426
  Transmission Date: 20230721
  Serious: Yes (Other)
  Sender: FDA-Public Use
  Company Number: GB-Canton Laboratories, LLC-2140806

PATIENT
  Sex: Female

DRUGS (3)
  1. NAPROSYN [Suspect]
     Active Substance: NAPROXEN
     Indication: Product used for unknown indication
  2. AMITRIPTYLINE HYDROCHLORIDE [Concomitant]
     Active Substance: AMITRIPTYLINE HYDROCHLORIDE
     Dates: start: 20221123
  3. APIXABAN [Suspect]
     Active Substance: APIXABAN
     Dates: start: 20180207

REACTIONS (63)
  - Subarachnoid haemorrhage [Unknown]
  - Blindness [None]
  - Ventricular tachycardia [Unknown]
  - Carotid artery occlusion [Unknown]
  - Angioedema [Unknown]
  - Transient ischaemic attack [Recovered/Resolved]
  - Hallucination [Unknown]
  - Pericarditis [Unknown]
  - Vasculitis [Unknown]
  - Myocardial infarction [Unknown]
  - Abdominal discomfort [Unknown]
  - COVID-19 [Unknown]
  - Arthralgia [Recovered/Resolved]
  - Pain of skin [Recovered/Resolved]
  - Peripheral swelling [Recovered/Resolved]
  - Memory impairment [Unknown]
  - Diplopia [Unknown]
  - Pruritus genital [Unknown]
  - Sleep terror [Unknown]
  - Fatigue [Unknown]
  - Cardiospasm [Unknown]
  - Atrial tachycardia [Unknown]
  - Anxiety [Unknown]
  - Feeling abnormal [Unknown]
  - Heart rate increased [Unknown]
  - Muscle twitching [Unknown]
  - Abdominal pain upper [Unknown]
  - Dehydration [Unknown]
  - Hyperhidrosis [Unknown]
  - Rash papular [Unknown]
  - Lip swelling [Unknown]
  - Palmoplantar keratoderma [Unknown]
  - Dry skin [Unknown]
  - Chest pain [Unknown]
  - Palpitations [Unknown]
  - Tachycardia [Unknown]
  - Pain [Unknown]
  - Anosmia [Unknown]
  - Eye pruritus [Unknown]
  - Facial pain [Unknown]
  - Headache [Unknown]
  - Back pain [Unknown]
  - Blood glucose increased [Unknown]
  - Pruritus [Unknown]
  - Amnesia [Unknown]
  - Alopecia [Unknown]
  - Tinnitus [Unknown]
  - Dyspnoea [Unknown]
  - Pyrexia [Recovered/Resolved]
  - Tension headache [Unknown]
  - Migraine [Unknown]
  - Malaise [Unknown]
  - Dizziness [Recovered/Resolved]
  - Muscular weakness [Unknown]
  - Nausea [Recovered/Resolved]
  - Diarrhoea [Unknown]
  - Cognitive disorder [Recovered/Resolved]
  - Disturbance in attention [Recovered/Resolved]
  - Vomiting [Recovered/Resolved]
  - Insomnia [Unknown]
  - Off label use [Unknown]
  - Intentional product misuse [Unknown]
  - Intentional product use issue [Unknown]

NARRATIVE: CASE EVENT DATE: 20180207
